FAERS Safety Report 16269656 (Version 2)
Quarter: 2019Q2

REPORT INFORMATION
  Report Type: Spontaneous
  Country: JP (occurrence: JP)
  Receive Date: 20190503
  Receipt Date: 20190522
  Transmission Date: 20190711
  Serious: No
  Sender: FDA-Public Use
  Company Number: JP-ALLERGAN-1914357US

PATIENT
  Sex: Male

DRUGS (2)
  1. BOTOX [Suspect]
     Active Substance: ONABOTULINUMTOXINA
     Dosage: UNK, SINGLE
     Route: 030
     Dates: start: 20181031, end: 20181031
  2. BOTOX [Suspect]
     Active Substance: ONABOTULINUMTOXINA
     Indication: MUSCLE SPASMS
     Dosage: UNK, SINGLE
     Route: 030
     Dates: start: 20190313, end: 20190313

REACTIONS (2)
  - Liver function test increased [Unknown]
  - Therapeutic product effect incomplete [Unknown]

NARRATIVE: CASE EVENT DATE: 2019
